FAERS Safety Report 9628973 (Version 1)
Quarter: 2013Q4

REPORT INFORMATION
  Report Type: Spontaneous
  Country: US (occurrence: US)
  Receive Date: 20131017
  Receipt Date: 20131017
  Transmission Date: 20140711
  Serious: No
  Sender: FDA-Public Use
  Company Number: US-009507513-1309USA010718

PATIENT
  Sex: Male

DRUGS (4)
  1. PEGINTRON [Suspect]
     Indication: HEPATITIS C
     Dosage: REDIPEN
     Dates: start: 20130920, end: 20130927
  2. PEGINTRON [Suspect]
     Dosage: VIALIS
     Dates: start: 2001
  3. REBETOL [Suspect]
     Indication: HEPATITIS C
     Dosage: UNKNOWN
     Route: 048
     Dates: start: 20130920, end: 20130927
  4. REBETOL [Suspect]
     Dosage: UNKNOWN
     Route: 048
     Dates: start: 2001

REACTIONS (2)
  - Adverse event [Unknown]
  - Platelet count decreased [Unknown]
